FAERS Safety Report 12692176 (Version 3)
Quarter: 2016Q3

REPORT INFORMATION
  Report Type: Not Available
  Country: MY (occurrence: MY)
  Receive Date: 20160827
  Receipt Date: 20160914
  Transmission Date: 20161109
  Serious: Yes (Other)
  Sender: FDA-Public Use
  Company Number: MY-LUPIN PHARMACEUTICALS INC.-2016-03834

PATIENT
  Age: 42 Year
  Sex: Male

DRUGS (3)
  1. DICLOFENAC [Suspect]
     Active Substance: DICLOFENAC
     Indication: PAIN
     Dosage: 075 MG
     Route: 030
  2. DICLOFENAC [Suspect]
     Active Substance: DICLOFENAC
     Indication: PAIN
     Dosage: 075 MG
     Route: 030
  3. TETANUS TOXOID [Concomitant]
     Active Substance: TETANUS TOXOIDS
     Indication: PRODUCT USED FOR UNKNOWN INDICATION
     Route: 065

REACTIONS (3)
  - Pruritus [Recovered/Resolved]
  - Rash [Recovered/Resolved]
  - Orbital oedema [Recovered/Resolved]

NARRATIVE: CASE EVENT DATE: 20150512
